FAERS Safety Report 6548332-5 (Version None)
Quarter: 2010Q1

REPORT INFORMATION
  Report Type: 
  Country: None (occurrence: None)
  Receive Date: 20100124
  Receipt Date: 20090506
  Transmission Date: 20100710
  Serious: No
  Sender: FDA-Public Use
  Company Number: US-ALLERGAN-0906280US

PATIENT
  Age: 66 Year
  Sex: Female

DRUGS (4)
  1. RESTASIS [Suspect]
     Indication: DRY EYE
     Dosage: UNK, UNKNOWN
     Route: 047
  2. RESTASIS [Suspect]
     Dosage: UNK, UNKNOWN
     Route: 047
  3. CARDOZIN [Concomitant]
     Dosage: 120 MG, QD
  4. SYNTHROID [Concomitant]
     Dosage: UNK, QD

REACTIONS (2)
  - EXPIRED DRUG ADMINISTERED [None]
  - PARANASAL SINUS HYPERSECRETION [None]
